FAERS Safety Report 13047504 (Version 1)
Quarter: 2016Q4

REPORT INFORMATION
  Report Type: Spontaneous
  Country: US (occurrence: US)
  Receive Date: 20161220
  Receipt Date: 20161220
  Transmission Date: 20170207
  Serious: No
  Sender: FDA-Public Use
  Company Number: US-ACTAVIS-2016-05709

PATIENT
  Age: 38 Year
  Sex: Female

DRUGS (1)
  1. MICONAZOLE NITRATE (AMALLC) [Suspect]
     Active Substance: MICONAZOLE NITRATE
     Indication: FUNGAL INFECTION
     Dosage: UNK, QHS, ONCE AT NIGHT
     Route: 065
     Dates: start: 20160303, end: 20160310

REACTIONS (4)
  - Vulvovaginal swelling [Unknown]
  - Vulvovaginal pruritus [Unknown]
  - Drug ineffective [Unknown]
  - Vulvovaginal burning sensation [Unknown]
